FAERS Safety Report 24523931 (Version 1)
Quarter: 2024Q4

REPORT INFORMATION
  Report Type: Spontaneous
  Country: FR (occurrence: FR)
  Receive Date: 20241018
  Receipt Date: 20241018
  Transmission Date: 20250114
  Serious: Yes (Other)
  Sender: BRISTOL-MYERS SQUIBB COMPANY
  Company Number: None

PATIENT
  Age: 72 Year
  Sex: Male
  Weight: 85 kg

DRUGS (4)
  1. KRAZATI [Suspect]
     Active Substance: ADAGRASIB
     Indication: Lung adenocarcinoma
     Route: 048
     Dates: start: 20240801, end: 20240905
  2. KRAZATI [Suspect]
     Active Substance: ADAGRASIB
     Route: 048
     Dates: start: 20240908, end: 20240925
  3. KARDEGIC [Concomitant]
     Active Substance: ASPIRIN DL-LYSINE
     Indication: Product used for unknown indication
  4. AMLODIPINE [Concomitant]
     Active Substance: AMLODIPINE BESYLATE
     Indication: Product used for unknown indication
     Dates: start: 202404

REACTIONS (7)
  - Liver injury [Recovered/Resolved]
  - Acute kidney injury [Recovering/Resolving]
  - Urticaria [Unknown]
  - Pruritus [Unknown]
  - Oedema mouth [Unknown]
  - Malaise [Unknown]
  - Loss of consciousness [Unknown]

NARRATIVE: CASE EVENT DATE: 20240828
